FAERS Safety Report 8217241-8 (Version None)
Quarter: 2012Q1

REPORT INFORMATION
  Report Type: 
  Country: None (occurrence: None)
  Receive Date: 20120313
  Receipt Date: 20120301
  Transmission Date: 20120608
  Serious: Yes (Death, Other)
  Sender: FDA-Public Use
  Company Number: PD 154

PATIENT
  Age: 1 Year
  Weight: 1.5 kg

DRUGS (3)
  1. RANITIDINE [Suspect]
     Indication: STRESS
  2. RANITIDINE [Suspect]
     Indication: GASTRIC DISORDER
  3. RANITIDINE [Suspect]
     Indication: GASTROOESOPHAGEAL REFLUX DISEASE

REACTIONS (4)
  - INFECTION [None]
  - SEPSIS [None]
  - PNEUMONIA [None]
  - URINARY TRACT INFECTION [None]
